FAERS Safety Report 13710596 (Version 3)
Quarter: 2017Q4

REPORT INFORMATION
  Report Type: Spontaneous
  Country: US (occurrence: US)
  Receive Date: 20170703
  Receipt Date: 20171020
  Transmission Date: 20180320
  Serious: Yes (Other)
  Sender: FDA-Public Use
  Company Number: US-ASTRAZENECA-2017SE65514

PATIENT
  Age: 29046 Day
  Sex: Male
  Weight: 63.5 kg

DRUGS (6)
  1. BRILINTA [Suspect]
     Active Substance: TICAGRELOR
     Indication: ANTICOAGULANT THERAPY
     Route: 048
     Dates: start: 20170608, end: 20170619
  2. BABY ASPIRIN [Concomitant]
     Active Substance: ASPIRIN
     Indication: SUPPLEMENTATION THERAPY
     Route: 048
  3. COREG [Concomitant]
     Active Substance: CARVEDILOL
     Indication: BLOOD PRESSURE MEASUREMENT
     Route: 048
     Dates: start: 2003
  4. BRILINTA [Suspect]
     Active Substance: TICAGRELOR
     Indication: STENT PLACEMENT
     Route: 048
     Dates: start: 20170608, end: 20170619
  5. LIPITOR [Concomitant]
     Active Substance: ATORVASTATIN CALCIUM
     Route: 048
  6. COREG [Concomitant]
     Active Substance: CARVEDILOL
     Indication: BLOOD PRESSURE MEASUREMENT
     Route: 048

REACTIONS (17)
  - Dyspnoea [Recovering/Resolving]
  - Anxiety [Recovered/Resolved]
  - Gastritis [Unknown]
  - Agitation [Recovering/Resolving]
  - Cholelithiasis [Unknown]
  - Duodenal ulcer [Unknown]
  - Chest discomfort [Unknown]
  - Feeling abnormal [Recovering/Resolving]
  - Aortic aneurysm [Unknown]
  - Decreased appetite [Recovered/Resolved]
  - Fatigue [Recovering/Resolving]
  - Hypertension [Unknown]
  - Vomiting [Unknown]
  - Nausea [Unknown]
  - Insomnia [Recovering/Resolving]
  - Dyslipidaemia [Unknown]
  - Abdominal pain upper [Unknown]

NARRATIVE: CASE EVENT DATE: 20170608
